FAERS Safety Report 9434424 (Version 1)
Quarter: 2013Q3

REPORT INFORMATION
  Report Type: Spontaneous
  Country: US (occurrence: None)
  Receive Date: 20130731
  Receipt Date: 20130731
  Transmission Date: 20140515
  Serious: No
  Sender: FDA-Public Use
  Company Number: None

PATIENT
  Age: 57 Year
  Sex: Female

DRUGS (1)
  1. HUMIRA [Suspect]
     Indication: ENTERITIS
     Dosage: 40MG WEEKLY SUBQ
     Route: 058
     Dates: start: 20130117

REACTIONS (6)
  - Haemoglobin decreased [None]
  - Haematocrit decreased [None]
  - Weight decreased [None]
  - Night sweats [None]
  - Decreased appetite [None]
  - Fatigue [None]
